FAERS Safety Report 7607238-0 (Version None)
Quarter: 2011Q3

REPORT INFORMATION
  Report Type: 
  Country: None (occurrence: None)
  Receive Date: 20110713
  Receipt Date: 20110601
  Transmission Date: 20111222
  Serious: Yes (Death, Hospitalization)
  Sender: FDA-Public Use
  Company Number: US-US-EMD SERONO, INC.-232619K07USA

PATIENT
  Sex: Male

DRUGS (3)
  1. REBIF [Suspect]
     Indication: MULTIPLE SCLEROSIS
     Route: 058
     Dates: start: 20060407, end: 20100101
  2. COUMADIN [Concomitant]
     Indication: CARDIAC DISORDER
     Dates: end: 20070101
  3. COUMADIN [Concomitant]
     Route: 065
     Dates: start: 20070101, end: 20100101

REACTIONS (3)
  - BALANCE DISORDER [None]
  - URINARY INCONTINENCE [None]
  - CEREBROVASCULAR ACCIDENT [None]
